FAERS Safety Report 4987635-2 (Version None)
Quarter: 2006Q2

REPORT INFORMATION
  Report Type: 
  Country: None (occurrence: None)
  Receive Date: 20060424
  Receipt Date: 20060403
  Transmission Date: 20061013
  Serious: Yes (Other)
  Sender: FDA-Public Use
  Company Number: US200604000567

PATIENT
  Age: 59 Year
  Sex: Female

DRUGS (5)
  1. CYMBALTA [Suspect]
     Indication: DEPRESSION
     Dosage: 60 MG, DAILY (1/D)  ; 30 MG, DAILY (1/D), ORAL
     Route: 048
     Dates: end: 20060401
  2. CYMBALTA [Suspect]
     Indication: DEPRESSION
     Dosage: 60 MG, DAILY (1/D)  ; 30 MG, DAILY (1/D), ORAL
     Route: 048
     Dates: start: 20051001
  3. PROZAC [Suspect]
     Indication: DEPRESSION
     Dosage: 120 MG
  4. TEMAZEPAM [Concomitant]
  5. MIRAPEX [Concomitant]

REACTIONS (11)
  - ABNORMAL DREAMS [None]
  - ACTIVITIES OF DAILY LIVING IMPAIRED [None]
  - DIARRHOEA [None]
  - DIZZINESS [None]
  - FATIGUE [None]
  - HYSTERECTOMY [None]
  - LIMB DISCOMFORT [None]
  - MUSCLE SPASMS [None]
  - PARAESTHESIA [None]
  - PRESCRIBED OVERDOSE [None]
  - SEXUAL DYSFUNCTION [None]
